FAERS Safety Report 17719906 (Version 1)
Quarter: 2020Q2

REPORT INFORMATION
  Report Type: Report from Study
  Country: BR (occurrence: BR)
  Receive Date: 20200428
  Receipt Date: 20200428
  Transmission Date: 20200714
  Serious: Yes (Other)
  Sender: FDA-Public Use
  Company Number: NVSC2020BR081778

PATIENT
  Age: 65 Year
  Sex: Female

DRUGS (2)
  1. COSENTYX [Suspect]
     Active Substance: SECUKINUMAB
     Indication: PSORIATIC ARTHROPATHY
  2. COSENTYX [Suspect]
     Active Substance: SECUKINUMAB
     Indication: ANKYLOSING SPONDYLITIS
     Dosage: UNK
     Route: 065
     Dates: start: 20190318

REACTIONS (13)
  - Sinusitis [Recovered/Resolved]
  - Decreased immune responsiveness [Recovered/Resolved]
  - Nasal crusting [Recovered/Resolved]
  - Rhinitis [Recovered/Resolved]
  - Haemorrhage [Recovering/Resolving]
  - Nasopharyngitis [Recovered/Resolved]
  - Lacrimation increased [Recovered/Resolved]
  - Hypersensitivity [Recovered/Resolved]
  - Swelling [Recovered/Resolved]
  - Eye irritation [Recovered/Resolved]
  - Wound [Recovering/Resolving]
  - Eye swelling [Recovered/Resolved]
  - Nasal dryness [Recovering/Resolving]

NARRATIVE: CASE EVENT DATE: 201911
